FAERS Safety Report 8475310-1 (Version None)
Quarter: 2012Q2

REPORT INFORMATION
  Report Type: 
  Country: None (occurrence: None)
  Receive Date: 20120628
  Receipt Date: 20120622
  Transmission Date: 20120825
  Serious: Yes (Death)
  Sender: FDA-Public Use
  Company Number: US-BAXTER-2012BAX008023

PATIENT
  Sex: Male

DRUGS (3)
  1. DIANEAL [Suspect]
     Indication: PERITONEAL DIALYSIS
     Route: 033
     Dates: end: 20111222
  2. DIANEAL [Suspect]
     Route: 033
     Dates: end: 20111222
  3. DIANEAL [Suspect]
     Route: 033
     Dates: end: 20111222

REACTIONS (2)
  - VASCULAR CALCIFICATION [None]
  - GASTROINTESTINAL DISORDER [None]
